FAERS Safety Report 8165635-1 (Version None)
Quarter: 2012Q1

REPORT INFORMATION
  Report Type: 
  Country: None (occurrence: None)
  Receive Date: 20120103
  Receipt Date: 20111019
  Transmission Date: 20120608
  Serious: No
  Sender: FDA-Public Use
  Company Number: AE-2011-002473

PATIENT
  Age: 52 Year
  Sex: Male
  Weight: 85.7298 kg

DRUGS (5)
  1. RIBAVIRIN [Concomitant]
  2. PEGINTERFERON (PEGINTERFERON ALFA-2A) [Concomitant]
  3. LISINOPRIL [Concomitant]
  4. METOPROLOL TARTRATE [Concomitant]
  5. INCIVEK [Suspect]
     Dosage: 2250 MG (750 MG, 1 IN 8 HR), ORAL
     Route: 048
     Dates: start: 20110808

REACTIONS (5)
  - RECTAL HAEMORRHAGE [None]
  - EATING DISORDER [None]
  - WEIGHT DECREASED [None]
  - DIARRHOEA [None]
  - FEAR OF EATING [None]
